FAERS Safety Report 4744328-4 (Version None)
Quarter: 2005Q3

REPORT INFORMATION
  Report Type: 
  Country: None (occurrence: None)
  Receive Date: 20050811
  Receipt Date: 20050811
  Transmission Date: 20060218
  Serious: Yes (Hospitalization)
  Sender: FDA-Public Use
  Company Number: None

PATIENT
  Sex: Male
  Weight: 115 kg

DRUGS (19)
  1. CISPLATIN (MG/M2), WK 2,3,5,6 [Suspect]
     Indication: OESOPHAGEAL CARCINOMA
     Dosage: 30        IV
     Route: 042
     Dates: start: 20050701, end: 20050722
  2. IRINOTECAN (MG/M2),  2K 2,3,5,6 [Suspect]
     Indication: OESOPHAGEAL CARCINOMA
     Dosage: 65          IV
     Route: 042
     Dates: start: 20050701, end: 20050722
  3. CETUXIMAB (MG/M2) WK 1-9,  15-44 [Suspect]
     Indication: OESOPHAGEAL CARCINOMA
     Dosage: 250              IV   (WK 1 OF CETUXIMAB IS LOADING DOSE OF 400 MG/M2, IV)
     Route: 042
     Dates: start: 20050624, end: 20050722
  4. XRT,  D1-5,   WK 2-7 [Suspect]
     Indication: OESOPHAGEAL CARCINOMA
     Dosage: 180GCY
     Dates: start: 20050627, end: 20050727
  5. ADDERALL 30 [Concomitant]
  6. ALPRAZOLAM [Concomitant]
  7. CARAFATE [Concomitant]
  8. COGENTIN [Concomitant]
  9. DIOVAN [Concomitant]
  10. IMDUR [Concomitant]
  11. LIPITOR [Concomitant]
  12. NEXIUM [Concomitant]
  13. PROZAC [Concomitant]
  14. RISPERDAL [Concomitant]
  15. TOPAMAX [Concomitant]
  16. TRICOR [Concomitant]
  17. WELLBUTRIN [Concomitant]
  18. ZETIA [Concomitant]
  19. ZYPREXA [Concomitant]

REACTIONS (9)
  - DEHYDRATION [None]
  - DIARRHOEA [None]
  - DIZZINESS [None]
  - GASTRITIS EROSIVE [None]
  - HAEMORRHAGE [None]
  - HAEMORRHOIDS [None]
  - OESOPHAGEAL ULCER [None]
  - RECTAL HAEMORRHAGE [None]
  - TREMOR [None]
